FAERS Safety Report 10336601 (Version 1)
Quarter: 2014Q3

REPORT INFORMATION
  Report Type: Spontaneous
  Country: CH (occurrence: CH)
  Receive Date: 20140723
  Receipt Date: 20140723
  Transmission Date: 20150326
  Serious: Yes (Other)
  Sender: FDA-Public Use
  Company Number: CH-PFIZER INC-2014199110

PATIENT
  Sex: Female

DRUGS (5)
  1. TRITTICO [Suspect]
     Active Substance: TRAZODONE HYDROCHLORIDE
     Indication: BORDERLINE PERSONALITY DISORDER
     Dosage: UNK
     Route: 064
     Dates: start: 2010, end: 201305
  2. DORMICUM [Suspect]
     Active Substance: MIDAZOLAM\MIDAZOLAM HYDROCHLORIDE
     Indication: BORDERLINE PERSONALITY DISORDER
     Dosage: UNK
     Route: 064
     Dates: start: 2010, end: 201305
  3. XANAX [Suspect]
     Active Substance: ALPRAZOLAM
     Indication: BORDERLINE PERSONALITY DISORDER
     Dosage: UNK
     Route: 064
     Dates: start: 2010, end: 201305
  4. SERTRALINE HCL [Suspect]
     Active Substance: SERTRALINE HYDROCHLORIDE
     Indication: BORDERLINE PERSONALITY DISORDER
     Dosage: UNK
     Route: 064
     Dates: start: 2010, end: 201305
  5. TOPAMAX [Suspect]
     Active Substance: TOPIRAMATE
     Indication: BORDERLINE PERSONALITY DISORDER
     Dosage: UNK
     Route: 064
     Dates: start: 2010, end: 201305

REACTIONS (2)
  - Foetal growth restriction [Recovered/Resolved]
  - Maternal exposure during pregnancy [Recovered/Resolved]

NARRATIVE: CASE EVENT DATE: 2013
